FAERS Safety Report 5420838-1 (Version None)
Quarter: 2007Q3

REPORT INFORMATION
  Report Type: 
  Country: None (occurrence: None)
  Receive Date: 20070816
  Receipt Date: 20070808
  Transmission Date: 20080115
  Serious: Yes (Hospitalization, Other)
  Sender: FDA-Public Use
  Company Number: 2007-03715

PATIENT
  Age: 26 Year
  Sex: Male

DRUGS (5)
  1. TRIHEXYPHENIDYL HCL [Suspect]
     Indication: DRUG DEPENDENCE
     Dosage: 15 MG, TAKEN IRREGULARLY, ORAL
     Route: 048
     Dates: start: 19950101, end: 19960101
  2. LEVOPROMAZIN (LEVOPROMAZINE) [Concomitant]
  3. AMITRIPTYLINE HCL [Concomitant]
  4. CHLORPROMAZINE [Concomitant]
  5. CHLORDIAZEPOXIDE [Concomitant]

REACTIONS (2)
  - DRUG DEPENDENCE [None]
  - STEVENS-JOHNSON SYNDROME [None]
